FAERS Safety Report 10759482 (Version 1)
Quarter: 2015Q1

REPORT INFORMATION
  Report Type: Spontaneous
  Country: US (occurrence: US)
  Receive Date: 20150203
  Receipt Date: 20150203
  Transmission Date: 20150721
  Serious: No
  Sender: FDA-Public Use
  Company Number: US-GLAXOSMITHKLINE-US2014GSK049171

PATIENT
  Age: 45 Year
  Sex: Female
  Weight: 83.9 kg

DRUGS (4)
  1. ALPRAZOLAM. [Concomitant]
     Active Substance: ALPRAZOLAM
  2. VOTRIENT [Suspect]
     Active Substance: PAZOPANIB HYDROCHLORIDE
     Indication: SOFT TISSUE NEOPLASM
     Dosage: 400 MG, QD
     Route: 048
     Dates: start: 20141111
  3. ONDANSETRON ODT [Concomitant]
     Active Substance: ONDANSETRON
  4. OXYCODONE HYDROCHLORIDE. [Concomitant]
     Active Substance: OXYCODONE HYDROCHLORIDE

REACTIONS (6)
  - Bladder pain [Unknown]
  - Micturition urgency [Unknown]
  - Nausea [Unknown]
  - Pollakiuria [Unknown]
  - Drug administration error [Recovered/Resolved]
  - Arthralgia [Unknown]

NARRATIVE: CASE EVENT DATE: 20141111
